FAERS Safety Report 4561059-4 (Version None)
Quarter: 2005Q1

REPORT INFORMATION
  Report Type: 
  Country: None (occurrence: None)
  Receive Date: 20050126
  Receipt Date: 20041014
  Transmission Date: 20050727
  Serious: Yes (Hospitalization)
  Sender: FDA-Public Use
  Company Number: US-BRISTOL-MYERS SQUIBB COMPANY-12731907

PATIENT
  Age: 46 Year
  Sex: Female
  Weight: 58 kg

DRUGS (3)
  1. GLUCOPHAGE [Suspect]
     Indication: DIABETES MELLITUS
     Dosage: 1000 MG TAB DAILY, THEN CUT TAB IN HALF TO TAKE 1/2 TAB IN AM AND 1/2 TAB IN PM
     Route: 048
     Dates: start: 19940101
  2. ACTOS [Concomitant]
  3. AMARYL [Concomitant]

REACTIONS (4)
  - BLOOD GLUCOSE INCREASED [None]
  - HYPOAESTHESIA [None]
  - TOOTHACHE [None]
  - VISION BLURRED [None]
